FAERS Safety Report 19107193 (Version 1)
Quarter: 2021Q2

REPORT INFORMATION
  Report Type: Spontaneous
  Country: US (occurrence: US)
  Receive Date: 20210407
  Receipt Date: 20210407
  Transmission Date: 20210717
  Serious: Yes (Hospitalization)
  Sender: FDA-Public Use
  Company Number: None

PATIENT
  Age: 42 Year
  Sex: Female

DRUGS (12)
  1. DIVIGEL [Concomitant]
     Active Substance: ESTRADIOL
  2. HYDROXYCHLOR [Concomitant]
     Active Substance: HYDROXYCHLOROQUINE
  3. PULMOZYME [Suspect]
     Active Substance: DORNASE ALFA
     Indication: CYSTIC FIBROSIS
     Dosage: 1 VIAL
     Route: 055
     Dates: start: 20171123
  4. OMEPRAZOLE. [Concomitant]
     Active Substance: OMEPRAZOLE
  5. AMOXICILLIN. [Concomitant]
     Active Substance: AMOXICILLIN
  6. FLUCONAZOLE. [Concomitant]
     Active Substance: FLUCONAZOLE
  7. MONTELUKAST [Concomitant]
     Active Substance: MONTELUKAST SODIUM
  8. OXYCODONE [Concomitant]
     Active Substance: OXYCODONE
  9. ARNUITY ELPT [Concomitant]
  10. AMOX/K CLAV [Concomitant]
     Active Substance: AMOXICILLIN\CLAVULANATE POTASSIUM
  11. ONDANSETRON [Concomitant]
     Active Substance: ONDANSETRON
  12. PULMICORT TURBUHALER [Concomitant]
     Active Substance: BUDESONIDE

REACTIONS (3)
  - Appendicectomy [None]
  - Product dose omission issue [None]
  - Product availability issue [None]

NARRATIVE: CASE EVENT DATE: 20210324
